FAERS Safety Report 7586585-5 (Version None)
Quarter: 2011Q3

REPORT INFORMATION
  Report Type: 
  Country: None (occurrence: None)
  Receive Date: 20110701
  Receipt Date: 20110629
  Transmission Date: 20111222
  Serious: Yes (Life-Threatening)
  Sender: FDA-Public Use
  Company Number: JP-ABBOTT-11P-087-0835336-00

PATIENT
  Sex: Female
  Weight: 53 kg

DRUGS (6)
  1. SCOPOLAMINE BUTYLBROMIDE [Concomitant]
     Indication: GASTRITIS
     Route: 048
  2. HUMIRA [Suspect]
     Indication: PSORIATIC ARTHROPATHY
     Dosage: (80MG) 1 IN 2 WEEKS
     Route: 058
     Dates: start: 20110117, end: 20110117
  3. HUMIRA [Suspect]
     Indication: PUSTULAR PSORIASIS
     Dates: start: 20110131
  4. ALENDRONATE SODIUM [Concomitant]
     Indication: OSTEOPOROSIS
     Route: 048
  5. LACTOMIN [Concomitant]
     Indication: ENTEROCOLITIS
     Route: 048
  6. ISONIAZID [Concomitant]
     Indication: ANTIBIOTIC PROPHYLAXIS
     Route: 048

REACTIONS (2)
  - ANAPHYLACTOID REACTION [None]
  - OXYGEN SATURATION DECREASED [None]
